FAERS Safety Report 9196523 (Version 1)
Quarter: 2013Q1

REPORT INFORMATION
  Report Type: Spontaneous
  Country: US (occurrence: None)
  Receive Date: 20120709
  Receipt Date: 20120709
  Transmission Date: 20140127
  Serious: Yes (Other)
  Sender: FDA-Public Use
  Company Number: PHHY2011US52182

PATIENT
  Age: 48 Year
  Sex: Male

DRUGS (6)
  1. GLEEVEC [Suspect]
     Indication: GASTROINTESTINAL STROMAL TUMOUR
  2. AMLODIPINE (AMLODIPINE) [Concomitant]
  3. BENAZEPRIL HYDROCHLORIDE (BENAZEPRIL HYDROCHLORIDE) [Concomitant]
  4. IRON SUPPLEMENTS (NO INGREDIENTS/SUBSTANCES) [Concomitant]
  5. POTASSIUM (POTASSIUM) [Concomitant]
  6. HYDROCHLOROTHIAZICE (HYDROCHLOROTHIAZIDE) [Concomitant]

REACTIONS (4)
  - Left ventricular dysfunction [None]
  - Palpitations [None]
  - Heart sounds abnormal [None]
  - Fatigue [None]
